FAERS Safety Report 19901796 (Version 1)
Quarter: 2021Q3

REPORT INFORMATION
  Report Type: Spontaneous
  Country: US (occurrence: US)
  Receive Date: 20210929
  Receipt Date: 20210929
  Transmission Date: 20211014
  Serious: Yes (Other)
  Sender: FDA-Public Use
  Company Number: US-AMGEN-USASP2021147363

PATIENT
  Age: 30 Year
  Sex: Female

DRUGS (2)
  1. ENBREL [Suspect]
     Active Substance: ETANERCEPT
     Indication: OFF LABEL USE
  2. ENBREL [Suspect]
     Active Substance: ETANERCEPT
     Indication: VITAMIN D DEFICIENCY
     Dosage: 50 MILLIGRAM, QWK
     Route: 058
     Dates: start: 2013

REACTIONS (8)
  - Post procedural infection [Recovered/Resolved]
  - Deafness [Recovered/Resolved]
  - Postoperative wound complication [Recovered/Resolved]
  - Plastic surgery [Recovered/Resolved]
  - Sinusitis [Recovered/Resolved]
  - Off label use [Unknown]
  - Staphylococcal infection [Recovered/Resolved]
  - Crohn^s disease [Recovered/Resolved]

NARRATIVE: CASE EVENT DATE: 2014
